FAERS Safety Report 8949199 (Version 1)
Quarter: 2012Q4

REPORT INFORMATION
  Report Type: 
  Country: AU (occurrence: AU)
  Receive Date: 20121206
  Receipt Date: 20121206
  Transmission Date: 20130627
  Serious: Yes (Other)
  Sender: FDA-Public Use
  Company Number: AU-PFIZER INC-2012285766

PATIENT
  Age: 77 Year
  Sex: Male
  Weight: 83 kg

DRUGS (5)
  1. CELEBREX [Suspect]
     Indication: OSTEOARTHRITIS
     Dosage: 200 mg, occasional
  2. CELEBREX [Suspect]
     Indication: KNEE PAIN
  3. COVERAM [Concomitant]
     Indication: HYPERTENSION
     Dosage: 5 mg/5mg, 1x/day
     Route: 048
  4. BETALOC [Concomitant]
     Indication: HYPERTENSION
     Dosage: 50 mg, 1x/day
     Route: 048
  5. ACETYLSALICYLIC ACID [Concomitant]
     Indication: HYPERTENSION
     Dosage: 100 mg, 1x/day
     Route: 048

REACTIONS (8)
  - Syncope [Recovered/Resolved]
  - Monoparesis [Recovered/Resolved]
  - Dizziness [Recovered/Resolved]
  - Nausea [Recovered/Resolved]
  - Diarrhoea [Recovered/Resolved]
  - Hypersensitivity [Recovered/Resolved]
  - Burning sensation [Recovered/Resolved]
  - Erythema [Recovered/Resolved]
